FAERS Safety Report 9395820 (Version 1)
Quarter: 2013Q3

REPORT INFORMATION
  Report Type: Spontaneous
  Country: FR (occurrence: FR)
  Receive Date: 20130711
  Receipt Date: 20130711
  Transmission Date: 20140515
  Serious: Yes (Hospitalization)
  Sender: FDA-Public Use
  Company Number: FR-ASTRAZENECA-2013SE50620

PATIENT
  Age: 79 Year
  Sex: Female

DRUGS (2)
  1. BRILIQUE [Suspect]
     Indication: CORONARY ARTERY DISEASE
     Route: 048
     Dates: end: 20130605
  2. KARDEGIC [Concomitant]

REACTIONS (1)
  - Thrombosis in device [Unknown]
